FAERS Safety Report 6082516-8 (Version None)
Quarter: 2009Q1

REPORT INFORMATION
  Report Type: 
  Country: None (occurrence: None)
  Receive Date: 20090218
  Receipt Date: 20090209
  Transmission Date: 20090719
  Serious: Yes (Hospitalization)
  Sender: FDA-Public Use
  Company Number: NL-WATSON-2009-00989

PATIENT
  Age: 61 Year
  Sex: Female

DRUGS (2)
  1. CYCLOSPORINE (WATSON LABORATORIES) [Suspect]
     Indication: TRANSPLANT REJECTION
     Dosage: 120 MG, UNKNOWN
     Route: 065
  2. TIGECYCLINE [Suspect]
     Indication: URINARY TRACT INFECTION
     Dosage: UNK

REACTIONS (3)
  - DRUG INTERACTION [None]
  - DRUG LEVEL INCREASED [None]
  - NEPHROPATHY TOXIC [None]
